FAERS Safety Report 4566455-7 (Version None)
Quarter: 2005Q1

REPORT INFORMATION
  Report Type: 
  Country: None (occurrence: None)
  Receive Date: 20050126
  Receipt Date: 20050126
  Transmission Date: 20050727
  Serious: Yes (Disabling)
  Sender: FDA-Public Use
  Company Number: None

PATIENT
  Sex: Male
  Weight: 88.4514 kg

DRUGS (7)
  1. BOTOX INJECTION [Suspect]
     Indication: ANORECTAL OPERATION
     Dosage: 33 UNITS
     Dates: start: 20040817
  2. BOTOX INJECTION [Suspect]
     Indication: OFF LABEL USE
     Dosage: 33 UNITS
     Dates: start: 20040817
  3. EFFEXOR [Concomitant]
  4. METHYLPHENIDATE [Concomitant]
  5. CLONAZEPAM [Concomitant]
  6. LITHIUM [Concomitant]
  7. BACTRIM DS [Concomitant]

REACTIONS (11)
  - ANAL INJURY [None]
  - ANAL SPHINCTER ATONY [None]
  - BLOODY DISCHARGE [None]
  - CONSTIPATION [None]
  - DEFAECATION URGENCY [None]
  - FAECAL INCONTINENCE [None]
  - FREQUENT BOWEL MOVEMENTS [None]
  - GASTROINTESTINAL MOTILITY DISORDER [None]
  - ORAL INTAKE REDUCED [None]
  - POST PROCEDURAL PAIN [None]
  - SKIN ULCER [None]
